FAERS Safety Report 22280253 (Version 1)
Quarter: 2023Q2

REPORT INFORMATION
  Report Type: Spontaneous
  Country: US (occurrence: None)
  Receive Date: 20230501
  Receipt Date: 20230501
  Transmission Date: 20230722
  Serious: Yes (Other)
  Sender: FDA-Public Use
  Company Number: None

PATIENT
  Age: 24 Year
  Sex: Female
  Weight: 85.28 kg

DRUGS (1)
  1. RILPIVIRINE [Suspect]
     Active Substance: RILPIVIRINE
     Indication: HIV infection
     Dosage: FREQUENCY : MONTHLY;?
     Route: 030
     Dates: start: 2023

REACTIONS (3)
  - Injection site nodule [None]
  - Purulent discharge [None]
  - Nodule [None]

NARRATIVE: CASE EVENT DATE: 20230208
